FAERS Safety Report 9770623 (Version 2)
Quarter: 2014Q1

REPORT INFORMATION
  Report Type: Spontaneous
  Country: US (occurrence: US)
  Receive Date: 20131218
  Receipt Date: 20140214
  Transmission Date: 20141002
  Serious: Yes (Hospitalization)
  Sender: FDA-Public Use
  Company Number: US-JNJFOC-20131210237

PATIENT
  Age: 42 Year
  Sex: Male
  Weight: 95.26 kg

DRUGS (9)
  1. STELARA [Suspect]
     Indication: PSORIASIS
     Route: 058
     Dates: start: 20110113
  2. GLIPIZIDE [Concomitant]
     Indication: DIABETES MELLITUS
     Route: 048
     Dates: start: 201007
  3. LISINOPRIL [Concomitant]
     Indication: HYPERTENSION
     Route: 048
     Dates: start: 201110
  4. METFORMIN [Concomitant]
     Route: 048
     Dates: start: 201309
  5. LEVEMIR [Concomitant]
     Route: 048
     Dates: start: 201309
  6. METOPROLOL [Concomitant]
     Route: 048
     Dates: start: 201309
  7. CLOPIDOGREL [Concomitant]
     Route: 048
     Dates: start: 201309
  8. AMLODIPINE [Concomitant]
     Route: 048
     Dates: start: 201309
  9. ATORVASTATIN [Concomitant]
     Route: 048
     Dates: start: 201309

REACTIONS (1)
  - Cerebrovascular accident [Recovered/Resolved]
